FAERS Safety Report 20750301 (Version 1)
Quarter: 2022Q2

REPORT INFORMATION
  Report Type: Spontaneous
  Country: US (occurrence: US)
  Receive Date: 20220426
  Receipt Date: 20220426
  Transmission Date: 20220720
  Serious: No
  Sender: FDA-Public Use
  Company Number: US-PFIZER INC-202101175590

PATIENT
  Age: 39 Year
  Sex: Female

DRUGS (3)
  1. CHANTIX [Suspect]
     Active Substance: VARENICLINE TARTRATE
     Dosage: 1 MG
  2. CHANTIX [Suspect]
     Active Substance: VARENICLINE TARTRATE
     Dosage: 1 MG
  3. METHYLCOBALAMIN [Concomitant]
     Active Substance: METHYLCOBALAMIN
     Dosage: DAILY FOR 7 DAYS AND THEN ONCE A WEEK FOR 3 WEEKS

REACTIONS (4)
  - Hypoaesthesia [Unknown]
  - Burning sensation [Unknown]
  - Myalgia [Unknown]
  - Abdominal pain upper [Unknown]
